FAERS Safety Report 11095428 (Version 1)
Quarter: 2015Q2

REPORT INFORMATION
  Report Type: Report from Study
  Country: SA (occurrence: SA)
  Receive Date: 20150506
  Receipt Date: 20150506
  Transmission Date: 20150821
  Serious: Yes (Other)
  Sender: FDA-Public Use
  Company Number: SA-MYLANLABS-2015M1015050

PATIENT

DRUGS (4)
  1. LOSARTAN [Suspect]
     Active Substance: LOSARTAN
     Route: 065
  2. CISPLATIN HOSPIRA [Suspect]
     Active Substance: CISPLATIN
     Indication: OVARIAN CANCER
     Dosage: HIPEC WITH 100 MG/100ML CISPLATIN
     Route: 033
  3. ADRIAMYCIN [Suspect]
     Active Substance: DOXORUBICIN HYDROCHLORIDE
     Indication: OVARIAN CANCER
     Dosage: HIPEC WITH 50 MG/VIAL DOXORUBICIN
     Route: 033
  4. VANCOMYCIN [Suspect]
     Active Substance: VANCOMYCIN
     Route: 065

REACTIONS (1)
  - Renal failure [Recovering/Resolving]
